FAERS Safety Report 17841266 (Version 3)
Quarter: 2020Q2

REPORT INFORMATION
  Report Type: Spontaneous
  Country: CA (occurrence: CA)
  Receive Date: 20200529
  Receipt Date: 20200615
  Transmission Date: 20200714
  Serious: No
  Sender: FDA-Public Use
  Company Number: CA-ELI_LILLY_AND_COMPANY-CA202005007100

PATIENT
  Age: 62 Year
  Sex: Female

DRUGS (1)
  1. EMGALITY [Suspect]
     Active Substance: GALCANEZUMAB-GNLM
     Indication: MIGRAINE
     Dosage: 120 MG, MONTHLY (1/M)
     Route: 058
     Dates: start: 202001, end: 202005

REACTIONS (9)
  - Pruritus [Recovered/Resolved]
  - Hypoacusis [Recovering/Resolving]
  - Eustachian tube dysfunction [Unknown]
  - Injection site reaction [Recovered/Resolved]
  - Headache [Unknown]
  - Injection site erythema [Recovered/Resolved]
  - Rash [Recovered/Resolved]
  - Tinnitus [Recovering/Resolving]
  - Injection site swelling [Recovered/Resolved]

NARRATIVE: CASE EVENT DATE: 202003
